FAERS Safety Report 5317839-0 (Version None)
Quarter: 2007Q2

REPORT INFORMATION
  Report Type: 
  Country: None (occurrence: None)
  Receive Date: 20070430
  Receipt Date: 20070316
  Transmission Date: 20071010
  Serious: Yes (Other)
  Sender: FDA-Public Use
  Company Number: PHBS2007IT04409

PATIENT
  Sex: Female

DRUGS (1)
  1. TIMOLOL (TIMOLOL MALEATE) 0.5% (NOV) EYE DROPS [Suspect]
     Dosage: 0.5%, ONCE/SINGLE  OCULAR

REACTIONS (4)
  - CORNEAL ABRASION [None]
  - CORNEAL DISORDER [None]
  - EYE DISORDER [None]
  - EYE PAIN [None]
